FAERS Safety Report 21150923 (Version 1)
Quarter: 2022Q3

REPORT INFORMATION
  Report Type: Spontaneous
  Country: US (occurrence: US)
  Receive Date: 20220729
  Receipt Date: 20220729
  Transmission Date: 20221027
  Serious: Yes (Other)
  Sender: FDA-Public Use
  Company Number: US-BRISTOL-MYERS SQUIBB COMPANY-2022-081907

PATIENT
  Age: 65 Year
  Sex: Female
  Weight: 46.27 kg

DRUGS (1)
  1. REVLIMID [Suspect]
     Active Substance: LENALIDOMIDE
     Indication: Plasma cell myeloma
     Dosage: QD * 14 DAYS
     Route: 048

REACTIONS (3)
  - Renal impairment [Unknown]
  - Hepatic function abnormal [Unknown]
  - Off label use [Unknown]
